FAERS Safety Report 7405127-8 (Version None)
Quarter: 2011Q2

REPORT INFORMATION
  Report Type: 
  Country: None (occurrence: None)
  Receive Date: 20110404
  Receipt Date: 20110330
  Transmission Date: 20111010
  Serious: Yes (Hospitalization)
  Sender: FDA-Public Use
  Company Number: 2009SP017305

PATIENT
  Age: 31 Year
  Sex: Female
  Weight: 84.8226 kg

DRUGS (3)
  1. NUVARING [Suspect]
     Indication: CONTRACEPTION
     Dosage: 1 DF;
     Dates: start: 20060401, end: 20061101
  2. RESTORIL [Concomitant]
  3. TOPROL-XL [Concomitant]

REACTIONS (10)
  - SUBARACHNOID HAEMORRHAGE [None]
  - WEIGHT DECREASED [None]
  - PELVIC PAIN [None]
  - THROMBOPHLEBITIS [None]
  - ARNOLD-CHIARI MALFORMATION [None]
  - INTERNATIONAL NORMALISED RATIO INCREASED [None]
  - INTRACRANIAL VENOUS SINUS THROMBOSIS [None]
  - HYPERTENSION [None]
  - MUSCLE STRAIN [None]
  - CHEST PAIN [None]
